FAERS Safety Report 18550263 (Version 2)
Quarter: 2021Q1

REPORT INFORMATION
  Report Type: Spontaneous
  Country: DE (occurrence: DE)
  Receive Date: 20201126
  Receipt Date: 20210325
  Transmission Date: 20210419
  Serious: Yes (Hospitalization, Other)
  Sender: FDA-Public Use
  Company Number: NVSC2020DE308613

PATIENT
  Sex: Male
  Weight: 85 kg

DRUGS (8)
  1. NOVALGIN [Concomitant]
     Indication: PRODUCT USED FOR UNKNOWN INDICATION
     Dosage: UNK, PRN
     Route: 065
  2. LERCANIDIPIN?HCL AL [Concomitant]
     Dosage: 1 DF, QD (MORNING)
     Route: 065
     Dates: end: 201906
  3. LERCANIDIPIN?HCL AL [Concomitant]
     Indication: HYPERTENSION
     Dosage: 1 DF, QD (MORNING)
     Route: 065
  4. VALSARTAN HEXAL 160 MG FILMTABLETTEN [Suspect]
     Active Substance: VALSARTAN
     Indication: HYPERTENSION
     Dosage: 1 DF, QD
     Route: 065
     Dates: start: 201211, end: 2018
  5. DIOVAN [Suspect]
     Active Substance: VALSARTAN
     Indication: HYPERTENSION
     Dosage: 1 DF, QD, IN THE MORNING
     Route: 065
     Dates: start: 201211
  6. DIOVAN [Suspect]
     Active Substance: VALSARTAN
     Dosage: 1 DF, QD, IN THE MORNING
     Route: 065
     Dates: start: 201812
  7. CANDESARTAN. [Concomitant]
     Active Substance: CANDESARTAN
     Indication: PRODUCT USED FOR UNKNOWN INDICATION
     Dosage: 1X16, 1X DAILY (MORNING)
     Route: 065
  8. LERCANIDIPIN?HCL AL [Concomitant]
     Dosage: 0.5 DF, QD (MORNING)
     Route: 065
     Dates: end: 201906

REACTIONS (15)
  - Urinary incontinence [Recovered/Resolved]
  - Haemangioma of liver [Unknown]
  - Body temperature increased [Recovered/Resolved]
  - Benign prostatic hyperplasia [Recovered/Resolved]
  - Urethral injury [Recovered/Resolved]
  - Urethral stenosis [Unknown]
  - Dysuria [Recovered/Resolved]
  - Anal prolapse [Unknown]
  - Incisional hernia [Recovered/Resolved]
  - Sleep apnoea syndrome [Unknown]
  - Inflammation [Recovered/Resolved]
  - Bladder diverticulum [Unknown]
  - Renal oncocytoma [Unknown]
  - Hypertension [Recovered/Resolved]
  - Inguinal hernia [Unknown]

NARRATIVE: CASE EVENT DATE: 201812
